FAERS Safety Report 14229672 (Version 1)
Quarter: 2017Q4

REPORT INFORMATION
  Report Type: Spontaneous
  Country: US (occurrence: None)
  Receive Date: 20171128
  Receipt Date: 20171128
  Transmission Date: 20180321
  Serious: Yes (Disabling, Congenital Anomaly)
  Sender: FDA-Public Use
  Company Number: None

PATIENT
  Age: 29 Year
  Sex: Female
  Weight: 61.23 kg

DRUGS (7)
  1. LISINOPRIC [Concomitant]
  2. ONE-A-DAY VITAMINS [Concomitant]
  3. PLEGINE [Suspect]
     Active Substance: PHENDIMETRAZINE TARTRATE
     Indication: WEIGHT CONTROL
     Route: 048
     Dates: start: 196602
  4. FISH OIL [Concomitant]
     Active Substance: FISH OIL
  5. XARELTO [Concomitant]
     Active Substance: RIVAROXABAN
  6. BABY ASPIRIN [Concomitant]
     Active Substance: ASPIRIN
  7. SOTALOL. [Concomitant]
     Active Substance: SOTALOL

REACTIONS (9)
  - Tension [None]
  - Disorientation [None]
  - Asthenia [None]
  - Discomfort [None]
  - Insomnia [None]
  - Nervousness [None]
  - Drug dependence [None]
  - Exposure during pregnancy [None]
  - Congenital anomaly [None]

NARRATIVE: CASE EVENT DATE: 196610
